FAERS Safety Report 10013554 (Version 4)
Quarter: 2014Q4

REPORT INFORMATION
  Report Type: Spontaneous
  Country: IT (occurrence: IT)
  Receive Date: 20140315
  Receipt Date: 20141112
  Transmission Date: 20150528
  Serious: Yes (Other)
  Sender: FDA-Public Use
  Company Number: IT-ROCHE-1365102

PATIENT
  Age: 46 Year
  Sex: Male
  Weight: 79 kg

DRUGS (4)
  1. PEGASYS [Suspect]
     Active Substance: PEGINTERFERON ALFA-2A
     Indication: ANTIVIRAL TREATMENT
     Route: 058
     Dates: start: 20130409, end: 20140225
  2. COPEGUS [Interacting]
     Active Substance: RIBAVIRIN
     Indication: ANTIVIRAL TREATMENT
     Dosage: 6 TABLETS/DAY
     Route: 048
     Dates: start: 20130409, end: 20140225
  3. COPEGUS [Interacting]
     Active Substance: RIBAVIRIN
     Dosage: 3 TABLETS/DAY?REDUCED DOSE FROM 24 JUN 2013?DOSE WAS STOPPED ON 25/FEB/2014.
     Route: 048
  4. VICTRELIS [Interacting]
     Active Substance: BOCEPREVIR
     Indication: ANTIVIRAL TREATMENT
     Route: 048
     Dates: start: 20130513, end: 20140225

REACTIONS (2)
  - Drug interaction [Unknown]
  - Pancytopenia [Recovered/Resolved]

NARRATIVE: CASE EVENT DATE: 20130624
